FAERS Safety Report 9880057 (Version 1)
Quarter: 2014Q1

REPORT INFORMATION
  Report Type: Spontaneous
  Country: US (occurrence: US)
  Receive Date: 20140207
  Receipt Date: 20140207
  Transmission Date: 20141002
  Serious: No
  Sender: FDA-Public Use
  Company Number: US-BIOGENIDEC-2014BI010095

PATIENT
  Sex: Female

DRUGS (1)
  1. TYSABRI [Suspect]
     Indication: MULTIPLE SCLEROSIS
     Route: 042
     Dates: start: 20121231

REACTIONS (11)
  - Lipoma [Unknown]
  - Peroneal nerve palsy [Unknown]
  - Gait disturbance [Unknown]
  - Anxiety [Unknown]
  - Optic neuritis [Unknown]
  - Multiple sclerosis [Unknown]
  - Headache [Unknown]
  - Multiple sclerosis relapse [Unknown]
  - Dizziness [Unknown]
  - Influenza [Unknown]
  - Infection [Unknown]
